FAERS Safety Report 8988032 (Version 3)
Quarter: 2013Q1

REPORT INFORMATION
  Report Type: Report from Study
  Country: US (occurrence: US)
  Receive Date: 20121227
  Receipt Date: 20130117
  Transmission Date: 20140127
  Serious: Yes (Hospitalization)
  Sender: FDA-Public Use
  Company Number: US-FRI-1000041179

PATIENT
  Age: 51 Year
  Sex: Male
  Weight: 61.82 kg

DRUGS (3)
  1. VILAZODONE (DOUBLE-BLIND) [Suspect]
     Indication: GENERALISED ANXIETY DISORDER
     Route: 048
     Dates: start: 20121116, end: 20121219
  2. VILAZODONE [Suspect]
     Indication: GENERALISED ANXIETY DISORDER
     Dosage: 20 MG
     Route: 048
     Dates: start: 20121116
  3. OMEPRAZOLE [Concomitant]
     Indication: GASTROOESOPHAGEAL REFLUX DISEASE
     Dosage: 1 TABLET
     Route: 048
     Dates: start: 2006

REACTIONS (1)
  - Suicidal ideation [Not Recovered/Not Resolved]
